FAERS Safety Report 8300688-9 (Version None)
Quarter: 2012Q2

REPORT INFORMATION
  Report Type: 
  Country: None (occurrence: None)
  Receive Date: 20120420
  Receipt Date: 20120410
  Transmission Date: 20120825
  Serious: Yes (Death)
  Sender: FDA-Public Use
  Company Number: PHHY2012KR012842

PATIENT
  Sex: Male
  Weight: 59 kg

DRUGS (3)
  1. EXJADE [Suspect]
     Indication: IRON OVERLOAD
     Dosage: 1250 MG,
     Route: 048
     Dates: start: 20100428
  2. EXJADE [Suspect]
     Indication: APLASTIC ANAEMIA
  3. BLOOD TRANSFUSION, AUXILIARY PRODUCTS [Concomitant]
     Dosage: EVERY 4 WEEKS

REACTIONS (1)
  - DEATH [None]
